FAERS Safety Report 6831969-3 (Version None)
Quarter: 2010Q3

REPORT INFORMATION
  Report Type: 
  Country: None (occurrence: None)
  Receive Date: 20100712
  Receipt Date: 20090820
  Transmission Date: 20110219
  Serious: No
  Sender: FDA-Public Use
  Company Number: US-TYCO HEALTHCARE/MALLINCKRODT-T200901574

PATIENT
  Age: 43 Year
  Sex: Male

DRUGS (3)
  1. OXYCODONE HCL AND ACETAMINOPHEN [Suspect]
  2. OXYCODONE AND ACETAMINOPHEN [Suspect]
  3. ALPRAZOLAM [Suspect]

REACTIONS (5)
  - BALANCE DISORDER [None]
  - DEPRESSION [None]
  - DIZZINESS [None]
  - FEELING DRUNK [None]
  - VISION BLURRED [None]
